FAERS Safety Report 7184948 (Version 7)
Quarter: 2016Q3

REPORT INFORMATION
  Report Type: Report from Study
  Country: US (occurrence: US)
  Receive Date: 20091123
  Receipt Date: 20160901
  Transmission Date: 20161109
  Serious: Yes (Hospitalization, Other)
  Sender: FDA-Public Use
  Company Number: US-PFIZER INC-2009296442

PATIENT
  Age: 65 Year
  Sex: Female
  Weight: 90 kg

DRUGS (24)
  1. NEXIUM [Concomitant]
     Active Substance: ESOMEPRAZOLE MAGNESIUM
     Indication: PROPHYLAXIS
     Dosage: 40 MG, 1X/DAY
  2. MAGNESIUM [Concomitant]
     Active Substance: MAGNESIUM
     Dosage: UNK
     Dates: start: 2000
  3. CELECOXIB. [Suspect]
     Active Substance: CELECOXIB
     Indication: OSTEOARTHRITIS
     Dosage: UNK
     Route: 048
     Dates: start: 20081024, end: 20090929
  4. QVAR [Concomitant]
     Active Substance: BECLOMETHASONE DIPROPIONATE
     Dosage: UNK
     Route: 055
  5. ARTIFICIAL TEARS /00222401/ [Concomitant]
     Dosage: UNK
     Route: 061
     Dates: start: 2003
  6. AUGMENTIN [Concomitant]
     Active Substance: AMOXICILLIN\CLAVULANATE POTASSIUM
     Dosage: UNK
     Route: 048
     Dates: start: 20090929, end: 20091011
  7. LIPITOR [Concomitant]
     Active Substance: ATORVASTATIN CALCIUM
     Dosage: 10 MG, EVERY PM
     Route: 048
     Dates: start: 1998
  8. TYLENOL ALLERGY SINUS [Concomitant]
     Active Substance: ACETAMINOPHEN\CHLORPHENIRAMINE MALEATE\PHENYLEPHRINE HYDROCHLORIDE
     Dosage: ONE TABLET DAILY AS NEEDED
     Route: 048
  9. TYLENOL ARTHRITIS PAIN [Concomitant]
     Active Substance: ACETAMINOPHEN
     Dosage: TWO TABLETS FOUR TIMES A DAY AS NEEDED
     Route: 048
  10. MAGIC MOUTHWASH [Concomitant]
     Active Substance: DIPHENHYDRAMINE HYDROCHLORIDE\LIDOCAINE HYDROCHLORIDE\NYSTATIN
     Dosage: TWICE A DAY ON A PRN BASIS
  11. ZINC [Concomitant]
     Active Substance: ZINC\ZINC CHLORIDE
     Dosage: UNK
     Dates: start: 2000
  12. TYLENOL [Concomitant]
     Active Substance: ACETAMINOPHEN
     Dosage: UNK
     Route: 048
     Dates: start: 20090225, end: 20091016
  13. AMOXICILLIN. [Concomitant]
     Active Substance: AMOXICILLIN
     Dosage: UNK
     Route: 048
     Dates: start: 20090918, end: 20090925
  14. SOLU-MEDROL [Suspect]
     Active Substance: METHYLPREDNISOLONE SODIUM SUCCINATE
     Indication: ACUTE KIDNEY INJURY
     Dosage: UNK
     Route: 042
     Dates: start: 20091008, end: 20091016
  15. LEVOXYL [Concomitant]
     Active Substance: LEVOTHYROXINE SODIUM
     Dosage: 125 MCG, EVERY AM
     Route: 048
     Dates: start: 2005
  16. BISOPROLOL FUMARATE/HYDROCHLOROTHIAZIDE [Concomitant]
     Dosage: 2.5/6.25 MG, EVERY AM
     Route: 048
     Dates: start: 2000, end: 20091020
  17. CHONDROITIN/GLUCOSAMINE [Concomitant]
     Dosage: TWO TABLETS ORAL EVERY AM
     Route: 048
  18. CHONDROITIN/GLUCOSAMINE [Concomitant]
     Dosage: UNK
     Dates: start: 2000
  19. CELECOXIB. [Suspect]
     Active Substance: CELECOXIB
     Indication: RHEUMATOID ARTHRITIS
  20. PSEUDOEPHEDRINE HCL W/GUAIFENESIN [Concomitant]
     Active Substance: GUAIFENESIN\PSEUDOEPHEDRINE HYDROCHLORIDE
     Dosage: ONE TABLET DAILY AS NEEDED
     Route: 048
  21. MULTIVITAMINS [Concomitant]
     Active Substance: VITAMINS
     Dosage: ONE TABLET ORAL EVERY AM
     Route: 048
     Dates: start: 1990
  22. SALBUTAMOL SULFATE [Concomitant]
     Active Substance: ALBUTEROL SULFATE
     Dosage: TWO PUFFS EVERY 4 HOURS AS NEEDED
     Route: 055
  23. CALCIUM MAGNESIUM ZINC [Concomitant]
     Active Substance: CALCIUM\MAGNESIUM\ZINC
     Dosage: ONE TABLET ORAL EVERY AM
     Route: 048
  24. CALCIUM WITH VITAMIN D [Concomitant]
     Active Substance: CALCIUM\VITAMIN D
     Dosage: UNK
     Route: 048
     Dates: start: 2000

REACTIONS (4)
  - Vasculitis [Recovered/Resolved]
  - Atrial fibrillation [Recovering/Resolving]
  - Diabetes mellitus [Not Recovered/Not Resolved]
  - Acute kidney injury [Recovered/Resolved]

NARRATIVE: CASE EVENT DATE: 20091008
